FAERS Safety Report 21046305 (Version 1)
Quarter: 2022Q3

REPORT INFORMATION
  Report Type: Report from Study
  Country: US (occurrence: None)
  Receive Date: 20220706
  Receipt Date: 20220706
  Transmission Date: 20221026
  Serious: Yes (Other)
  Sender: FDA-Public Use
  Company Number: 2022A241135

PATIENT

DRUGS (1)
  1. LYNPARZA [Suspect]
     Active Substance: OLAPARIB
     Dosage: UNKNOWN
     Route: 048

REACTIONS (9)
  - Hypoaesthesia [Unknown]
  - Pain in extremity [Unknown]
  - Palpitations [Unknown]
  - Auditory disorder [Unknown]
  - Weight decreased [Unknown]
  - Constipation [Unknown]
  - Taste disorder [Unknown]
  - Fatigue [Unknown]
  - Dizziness [Unknown]
